FAERS Safety Report 18659841 (Version 1)
Quarter: 2020Q4

REPORT INFORMATION
  Report Type: Spontaneous
  Country: GB (occurrence: GB)
  Receive Date: 20201224
  Receipt Date: 20201224
  Transmission Date: 20210114
  Serious: Yes (Life-Threatening)
  Sender: FDA-Public Use
  Company Number: GB-ACCORD-211771

PATIENT
  Age: 75 Year
  Sex: Male
  Weight: 67 kg

DRUGS (8)
  1. ACETYLSALICYLIC ACID [Concomitant]
     Active Substance: ASPIRIN
  2. LANSOPRAZOLE. [Concomitant]
     Active Substance: LANSOPRAZOLE
  3. SENNA ALEXANDRINA [Concomitant]
     Active Substance: SENNA LEAF
  4. DESMOPRESSIN [Concomitant]
     Active Substance: DESMOPRESSIN
  5. ZOPICLONE [Concomitant]
     Active Substance: ZOPICLONE
  6. LACTULOSE. [Concomitant]
     Active Substance: LACTULOSE
  7. PARACETAMOL [Concomitant]
     Active Substance: ACETAMINOPHEN
  8. ATORVASTATIN/ATORVASTATIN CALCIUM [Suspect]
     Active Substance: ATORVASTATIN CALCIUM
     Indication: ARTERIOSCLEROSIS
     Route: 048
     Dates: start: 20201202, end: 20201203

REACTIONS (1)
  - Thrombotic thrombocytopenic purpura [Not Recovered/Not Resolved]

NARRATIVE: CASE EVENT DATE: 20201203
